FAERS Safety Report 10666457 (Version 1)
Quarter: 2014Q4

REPORT INFORMATION
  Report Type: Spontaneous
  Country: US (occurrence: US)
  Receive Date: 20141221
  Receipt Date: 20141221
  Transmission Date: 20150529
  Serious: No
  Sender: FDA-Public Use
  Company Number: US-GLAXOSMITHKLINE-US2014024646

PATIENT
  Sex: Female

DRUGS (1)
  1. ABREVA [Suspect]
     Active Substance: DOCOSANOL
     Indication: ORAL HERPES
     Dosage: UNK
     Route: 061
     Dates: start: 20141103, end: 20141118

REACTIONS (4)
  - Application site erythema [Recovered/Resolved]
  - Oral herpes [Recovered/Resolved]
  - Application site pain [Recovered/Resolved]
  - Drug ineffective [Unknown]
